FAERS Safety Report 5379034-9 (Version None)
Quarter: 2007Q3

REPORT INFORMATION
  Report Type: 
  Country: None (occurrence: None)
  Receive Date: 20070702
  Receipt Date: 20070621
  Transmission Date: 20080115
  Serious: Yes (Other)
  Sender: FDA-Public Use
  Company Number: S07-USA-02689-01

PATIENT
  Age: 52 Year
  Sex: Female

DRUGS (6)
  1. LEXAPRO [Suspect]
     Indication: DEPRESSION
     Dosage: 20 MG QD PO
     Route: 048
     Dates: start: 20070401, end: 20070605
  2. LEXAPRO [Suspect]
     Indication: DEPRESSION
     Dosage: 10 MG QD PO
     Route: 048
     Dates: start: 20070606, end: 20070620
  3. LEXAPRO [Suspect]
     Indication: DEPRESSION
     Dosage: 10 MG QD PO
     Route: 048
     Dates: start: 20070101, end: 20070401
  4. GEODON [Suspect]
     Indication: BIPOLAR DISORDER
     Dosage: 80 MG QD
  5. LAMICTAL [Suspect]
     Dosage: 300 MG QD
  6. STELAZINE [Suspect]
     Indication: MANIA
     Dates: start: 20070401, end: 20070501

REACTIONS (9)
  - CONDITION AGGRAVATED [None]
  - CONFUSIONAL STATE [None]
  - COORDINATION ABNORMAL [None]
  - DEPRESSION [None]
  - DRUG INTERACTION [None]
  - EXTRAPYRAMIDAL DISORDER [None]
  - GAIT DISTURBANCE [None]
  - MANIA [None]
  - PSYCHOTIC DISORDER [None]
